FAERS Safety Report 13984213 (Version 1)
Quarter: 2017Q3

REPORT INFORMATION
  Report Type: Spontaneous
  Country: ES (occurrence: ES)
  Receive Date: 20170918
  Receipt Date: 20170918
  Transmission Date: 20171128
  Serious: Yes (Hospitalization)
  Sender: FDA-Public Use
  Company Number: ES-MYLANLABS-2017M1057440

PATIENT
  Age: 32 Year
  Sex: Female

DRUGS (4)
  1. MAGNESIUM SULFATE. [Concomitant]
     Active Substance: MAGNESIUM SULFATE
     Indication: HELLP SYNDROME
     Route: 042
  2. PREDNISONE. [Suspect]
     Active Substance: PREDNISONE
     Indication: HELLP SYNDROME
     Route: 065
  3. ASPIRIN                            /00002701/ [Concomitant]
     Active Substance: ASPIRIN
     Indication: PRODUCT USED FOR UNKNOWN INDICATION
     Dosage: 100 MG/DAY
     Route: 065
  4. DEXAMETHASONE. [Suspect]
     Active Substance: DEXAMETHASONE
     Indication: HELLP SYNDROME
     Dosage: LATER DOSE WAS REDUCED TO 2 MG/12 HOURS
     Route: 065

REACTIONS (5)
  - Brain abscess [Recovered/Resolved]
  - Cerebral haemorrhage [Recovered/Resolved]
  - Cerebral infarction [Recovered/Resolved]
  - Maternal exposure during pregnancy [Recovered/Resolved]
  - Listeriosis [Recovered/Resolved]
